FAERS Safety Report 5770301-3 (Version None)
Quarter: 2008Q2

REPORT INFORMATION
  Report Type: 
  Country: None (occurrence: None)
  Receive Date: 20080613
  Receipt Date: 20080423
  Transmission Date: 20081010
  Serious: No
  Sender: FDA-Public Use
  Company Number: US-ABBOTT-08P-163-0449062-00

PATIENT
  Sex: Male
  Weight: 127.12 kg

DRUGS (9)
  1. HUMIRA [Suspect]
     Indication: PSORIATIC ARTHROPATHY
     Route: 058
     Dates: start: 20071101
  2. METHOTREXATE [Concomitant]
     Indication: ARTHRITIS
     Route: 048
  3. VERAPAMIL [Concomitant]
     Indication: BLOOD PRESSURE
     Route: 048
  4. IRBESARTAN [Concomitant]
     Indication: BLOOD PRESSURE
     Route: 048
  5. PIROXICAM [Concomitant]
     Indication: ARTHRITIS
     Route: 048
  6. HYDROCHLOROT [Concomitant]
     Indication: DIURETIC THERAPY
     Route: 048
  7. EZETIMIBE [Concomitant]
     Indication: BLOOD CHOLESTEROL
     Route: 048
  8. TOPIRAMATE [Concomitant]
     Indication: MIGRAINE
     Route: 048
  9. TESTOSTERONE [Concomitant]
     Indication: BLOOD TESTOSTERONE
     Dosage: 1% (UNIT DOSE)
     Route: 048

REACTIONS (7)
  - DRY MOUTH [None]
  - DRY SKIN [None]
  - HYPOAESTHESIA [None]
  - PARAESTHESIA [None]
  - PARAESTHESIA ORAL [None]
  - SENSORY DISTURBANCE [None]
  - SENSORY LOSS [None]
